FAERS Safety Report 22169556 (Version 3)
Quarter: 2023Q2

REPORT INFORMATION
  Report Type: Spontaneous
  Country: NZ (occurrence: NZ)
  Receive Date: 20230404
  Receipt Date: 20230408
  Transmission Date: 20230722
  Serious: Yes (Hospitalization)
  Sender: FDA-Public Use
  Company Number: NZ-ABBVIE-4714766

PATIENT
  Age: 70 Year
  Sex: Female

DRUGS (2)
  1. RINVOQ [Suspect]
     Active Substance: UPADACITINIB
     Indication: Rheumatoid arthritis
     Route: 048
     Dates: start: 202302
  2. PREDNISONE [Concomitant]
     Active Substance: PREDNISONE
     Indication: Product used for unknown indication

REACTIONS (10)
  - Hospitalisation [Recovered/Resolved]
  - Pain [Unknown]
  - Oesophageal mucosal blister [Unknown]
  - Migraine [Unknown]
  - Fatigue [Unknown]
  - Oral mucosal blistering [Unknown]
  - Feeding disorder [Unknown]
  - Tongue blistering [Unknown]
  - Fluid intake reduced [Unknown]
  - Abdominal discomfort [Unknown]

NARRATIVE: CASE EVENT DATE: 20230314
